FAERS Safety Report 6088733-5 (Version None)
Quarter: 2009Q1

REPORT INFORMATION
  Report Type: 
  Country: None (occurrence: None)
  Receive Date: 20090219
  Receipt Date: 20090210
  Transmission Date: 20090719
  Serious: Yes (Life-Threatening, Hospitalization, Disabling, Other)
  Sender: FDA-Public Use
  Company Number: GXKR2009DE01700

PATIENT
  Sex: Female
  Weight: 69 kg

DRUGS (4)
  1. DOXCYCLINE [Suspect]
     Indication: NASOPHARYNGITIS
     Dosage: 1 DF, QD
     Dates: start: 20081017, end: 20081025
  2. GARDASIL     (HUMAN PAPILLOMA VIRUS VACCINE) 0.12MG [Suspect]
     Indication: IMMUNISATION REACTION
     Dosage: 1X1 PREFILLED SYRINGE AT 0.12 MG, INTRAMUSCULAR
     Route: 030
     Dates: start: 20081023, end: 20081023
  3. BELARA (CHLORMADINONE ACETATE, ETHINYLESTRADIOL) [Concomitant]
  4. INVEGA (PALIPERIDONE) (PALIPERIDONE) [Concomitant]

REACTIONS (7)
  - GENERAL PHYSICAL HEALTH DETERIORATION [None]
  - HAEMOGLOBIN DECREASED [None]
  - HAEMOLYTIC URAEMIC SYNDROME [None]
  - HEADACHE [None]
  - PERITONEAL DIALYSIS [None]
  - RENAL FAILURE [None]
  - THROMBOTIC MICROANGIOPATHY [None]
